FAERS Safety Report 8458793-2 (Version None)
Quarter: 2012Q2

REPORT INFORMATION
  Report Type: 
  Country: None (occurrence: None)
  Receive Date: 20120622
  Receipt Date: 20120618
  Transmission Date: 20120825
  Serious: Yes (Death, Other)
  Sender: FDA-Public Use
  Company Number: US-BAYER-2012-006494

PATIENT
  Age: 39 Year
  Sex: Female
  Weight: 92 kg

DRUGS (24)
  1. YAZ [Suspect]
     Dosage: UNK
     Dates: start: 20071001
  2. YASMIN [Suspect]
     Dosage: UNK
     Dates: start: 20071001
  3. CYTOMEL [Concomitant]
     Dosage: UNK
     Dates: start: 20060901, end: 20100101
  4. PROVIGIL [Concomitant]
     Dosage: UNK
     Dates: start: 20080401, end: 20100101
  5. HYDROMORPHONE HCL [Concomitant]
  6. YAZ [Suspect]
     Indication: MENORRHAGIA
     Dosage: UNK
     Route: 048
     Dates: start: 20020501, end: 20060101
  7. YAZ [Suspect]
     Dosage: UNK
     Dates: start: 20090201, end: 20090501
  8. WELLBUTRIN [Concomitant]
     Dosage: UNK
     Dates: start: 20100101
  9. CLONAZEPAM [Concomitant]
     Dosage: UNK
     Dates: start: 20090101, end: 20100101
  10. ADVAIR DISKUS 100/50 [Concomitant]
     Dosage: DAILY
     Dates: start: 20100112
  11. MAGNESIUM OROTATE [Concomitant]
     Dosage: 1,000MG +#8211; 2 DAILY
     Dates: start: 20100112
  12. VITAMIN D [Concomitant]
     Dosage: 2000 MG, DAILY
     Dates: start: 20100112
  13. YAZ [Suspect]
     Dosage: UNK
     Dates: start: 20070201
  14. SEROQUEL [Concomitant]
  15. YASMIN [Suspect]
     Indication: MENORRHAGIA
     Dosage: UNK
     Dates: start: 20020501, end: 20060101
  16. LACTOFERRIN [Concomitant]
     Dosage: 250 MG, DAILY
     Dates: start: 20100112
  17. CALCIUM OROTATE [Concomitant]
     Dosage: 1,500 MG - 3 DAILY
     Dates: start: 20100112
  18. YASMIN [Suspect]
     Dosage: UNK
     Dates: start: 20090201, end: 20090501
  19. SYNTHROID [Concomitant]
     Indication: HYPOTHYROIDISM
     Dosage: UNK
     Dates: start: 20001101, end: 20100101
  20. CELEBREX [Concomitant]
  21. ACETAMINOPHEN [Concomitant]
  22. YASMIN [Suspect]
     Dosage: UNK
     Dates: start: 20070201
  23. MAXAIR [Concomitant]
     Indication: ASTHMA
     Dosage: UNK
     Dates: start: 20001101, end: 20100101
  24. NORDIC NATURALS PRO OMEGA [Concomitant]
     Dosage: 1920 MG +#8211; 3 DAILY
     Dates: start: 20100112

REACTIONS (6)
  - VENOUS THROMBOSIS LIMB [None]
  - CARDIAC ARREST [None]
  - PAIN [None]
  - PULMONARY EMBOLISM [None]
  - INJURY [None]
  - EMOTIONAL DISTRESS [None]
